FAERS Safety Report 19829719 (Version 1)
Quarter: 2021Q3

REPORT INFORMATION
  Report Type: Spontaneous
  Country: US (occurrence: US)
  Receive Date: 20210913
  Receipt Date: 20210913
  Transmission Date: 20211014
  Serious: Yes (Hospitalization)
  Sender: FDA-Public Use
  Company Number: None

PATIENT
  Age: 73 Year
  Sex: Female

DRUGS (13)
  1. CRAN CONC [Concomitant]
  2. DOFETILIDE. [Concomitant]
     Active Substance: DOFETILIDE
  3. DILTIAZEM CAP [Concomitant]
  4. DULOXETINE. [Suspect]
     Active Substance: DULOXETINE
  5. ELIQUIS [Concomitant]
     Active Substance: APIXABAN
  6. PROTONIX [Concomitant]
     Active Substance: PANTOPRAZOLE SODIUM
  7. IBUPROFEN. [Concomitant]
     Active Substance: IBUPROFEN
  8. AMBRISENTAN 10 MG TAB [Suspect]
     Active Substance: AMBRISENTAN
     Indication: PULMONARY ARTERIAL HYPERTENSION
     Route: 048
     Dates: start: 20210130
  9. PROAIR HFA [Concomitant]
     Active Substance: ALBUTEROL SULFATE
  10. UBRELVY [Concomitant]
     Active Substance: UBROGEPANT
  11. CALCIUM CHW GUMMIES [Concomitant]
  12. LEVOTHYROXIN [Suspect]
     Active Substance: LEVOTHYROXINE
  13. LETAIRIS [Concomitant]
     Active Substance: AMBRISENTAN

REACTIONS (1)
  - Pneumonia [None]

NARRATIVE: CASE EVENT DATE: 20210806
